FAERS Safety Report 8823570 (Version 4)
Quarter: 2014Q2

REPORT INFORMATION
  Report Type: Spontaneous
  Country: US (occurrence: US)
  Receive Date: 20121003
  Receipt Date: 20140512
  Transmission Date: 20141212
  Serious: Yes (Hospitalization, Other)
  Sender: FDA-Public Use
  Company Number: US-009507513-1103USA00962

PATIENT
  Sex: Female
  Weight: 82.54 kg

DRUGS (6)
  1. FOSAMAX [Suspect]
     Indication: OSTEOPOROSIS
     Dosage: 10 MG, QD
     Route: 048
     Dates: start: 1995
  2. FOSAMAX [Suspect]
     Indication: OSTEOPENIA
     Dosage: 70 MG, WEEKLY
     Route: 048
     Dates: end: 20090201
  3. MIACALCIN [Concomitant]
     Indication: OSTEOPOROSIS
     Dosage: UNK, QD
  4. CALCIUM (UNSPECIFIED) [Concomitant]
     Indication: OSTEOPOROSIS
     Dosage: 500 MG, BID
  5. CALCIUM (UNSPECIFIED) (+) VITAMIN D (UNSPECIFIED) [Concomitant]
     Indication: OSTEOPOROSIS
  6. OS-CAL + D [Concomitant]
     Indication: OSTEOPOROSIS

REACTIONS (58)
  - Femur fracture [Unknown]
  - Intramedullary rod insertion [Unknown]
  - Clavicle fracture [Unknown]
  - Cervical vertebral fracture [Unknown]
  - Ligament rupture [Unknown]
  - Fracture [Unknown]
  - Convulsion [Unknown]
  - Pneumonia [Unknown]
  - Renal failure chronic [Not Recovered/Not Resolved]
  - Cholecystectomy [Unknown]
  - Rib fracture [Unknown]
  - Asthenia [Unknown]
  - Fall [Unknown]
  - Wrist fracture [Unknown]
  - Lumbar vertebral fracture [Unknown]
  - Thoracic vertebral fracture [Unknown]
  - Spinal osteoarthritis [Not Recovered/Not Resolved]
  - Scoliosis [Unknown]
  - Lordosis [Unknown]
  - Muscle tightness [Unknown]
  - Lymphoedema [Unknown]
  - Knee arthroplasty [Unknown]
  - Hypertension [Unknown]
  - Insomnia [Unknown]
  - Depression [Unknown]
  - Osteoarthritis [Unknown]
  - Diverticulum [Unknown]
  - Hiatus hernia [Unknown]
  - Chronic obstructive pulmonary disease [Unknown]
  - Large intestine polyp [Unknown]
  - Spinal column stenosis [Unknown]
  - Intervertebral disc degeneration [Unknown]
  - Wrist fracture [Unknown]
  - Glaucoma [Unknown]
  - Transient ischaemic attack [Unknown]
  - Spinal fracture [Unknown]
  - Liver function test abnormal [Unknown]
  - Hyperparathyroidism [Unknown]
  - Balance disorder [Unknown]
  - Macular degeneration [Unknown]
  - Osteoarthritis [Unknown]
  - Anxiety [Unknown]
  - Osteoarthritis [Unknown]
  - Emphysema [Unknown]
  - Memory impairment [Unknown]
  - Vitamin D decreased [Unknown]
  - Blood calcium increased [Unknown]
  - Gout [Unknown]
  - Nodule [Unknown]
  - Gout [Unknown]
  - Skin abrasion [Unknown]
  - Dementia [Unknown]
  - Hyperlipidaemia [Unknown]
  - Back pain [Not Recovered/Not Resolved]
  - Drug ineffective [Unknown]
  - Gastrooesophageal reflux disease [Unknown]
  - Asthenia [Unknown]
  - Diarrhoea [Unknown]
